FAERS Safety Report 8975996 (Version 2)
Quarter: 2013Q1

REPORT INFORMATION
  Report Type: Report from Study
  Country: IL (occurrence: IL)
  Receive Date: 20121219
  Receipt Date: 20130131
  Transmission Date: 20140127
  Serious: Yes (Hospitalization)
  Sender: FDA-Public Use
  Company Number: PHHO2012IL014975

PATIENT
  Age: 80 Year
  Sex: Male
  Weight: 73 kg

DRUGS (4)
  1. MABTHERA [Suspect]
     Indication: NON-HODGKIN^S LYMPHOMA
     Dosage: UNK
     Route: 042
     Dates: start: 20120903
  2. CYCLOPHOSPHAMIDE [Suspect]
     Indication: CHEMOTHERAPY
     Dosage: 921.3 MG, UNK
     Route: 042
     Dates: start: 20120903
  3. PREDNISONE [Suspect]
     Indication: CHEMOTHERAPY
     Dosage: 100 MG, UNK
     Route: 048
     Dates: start: 20120903
  4. VINCRISTINE [Suspect]
     Indication: CHEMOTHERAPY
     Dosage: 13 MG, UNK
     Route: 042
     Dates: start: 20120903

REACTIONS (3)
  - Febrile neutropenia [Not Recovered/Not Resolved]
  - Pneumonia [Recovering/Resolving]
  - Neutropenia [Recovered/Resolved]
